FAERS Safety Report 4783595-8 (Version None)
Quarter: 2005Q3

REPORT INFORMATION
  Report Type: 
  Country: None (occurrence: None)
  Receive Date: 20050929
  Receipt Date: 20050923
  Transmission Date: 20060218
  Serious: Yes (Death, Hospitalization)
  Sender: FDA-Public Use
  Company Number: US-JNJFOC-20050905877

PATIENT
  Sex: Male

DRUGS (4)
  1. LEVAQUIN [Suspect]
     Indication: INFECTION
     Route: 048
  2. STOOL SOFTNER [Concomitant]
  3. NORVASC [Concomitant]
     Route: 048
  4. METOPROLOL [Concomitant]

REACTIONS (5)
  - ABDOMINAL PAIN [None]
  - CONSTIPATION [None]
  - CUTANEOUS ANTHRAX [None]
  - HAEMATOCHEZIA [None]
  - PYREXIA [None]
